FAERS Safety Report 4398104-5 (Version None)
Quarter: 2004Q3

REPORT INFORMATION
  Report Type: 
  Country: None (occurrence: None)
  Receive Date: 20040713
  Receipt Date: 20040625
  Transmission Date: 20050211
  Serious: Yes (Hospitalization)
  Sender: FDA-Public Use
  Company Number: DSA_24602_2004

PATIENT
  Age: 37 Year
  Sex: Male

DRUGS (2)
  1. LORAZEPAM [Suspect]
     Dosage: 125 MG ONCE PO
     Route: 048
     Dates: start: 20040618, end: 20040618
  2. DOMINAL [Suspect]
     Dosage: 8000 MG ONCE PO
     Route: 048
     Dates: start: 20040618, end: 20040618

REACTIONS (5)
  - FATIGUE [None]
  - INTENTIONAL OVERDOSE [None]
  - SOMNOLENCE [None]
  - TACHYCARDIA [None]
  - VENTRICULAR EXTRASYSTOLES [None]
